FAERS Safety Report 8042319 (Version 5)
Quarter: 2013Q2

REPORT INFORMATION
  Report Type: Spontaneous
  Country: US (occurrence: US)
  Receive Date: 20110718
  Receipt Date: 20130528
  Transmission Date: 20140414
  Serious: Yes (Congenital Anomaly, Other)
  Sender: FDA-Public Use
  Company Number: US-PFIZER INC-2011158484

PATIENT
  Sex: Female
  Weight: 3.5 kg

DRUGS (3)
  1. EFFEXOR XR [Suspect]
     Dosage: 75 MG, UNK
     Route: 064
     Dates: start: 20060131, end: 2006
  2. EFFEXOR XR [Suspect]
     Dosage: 37.5 MG, UNK
     Route: 064
     Dates: start: 20060314
  3. EFFEXOR [Suspect]
     Dosage: UNK
     Route: 064

REACTIONS (14)
  - Maternal exposure timing unspecified [Unknown]
  - Atrial septal defect [Unknown]
  - Tricuspid valve incompetence [Unknown]
  - Anomalous pulmonary venous connection [Unknown]
  - Upper respiratory tract infection [Unknown]
  - Hyperventilation [Unknown]
  - Tibial torsion [Unknown]
  - Otitis media [Unknown]
  - Jaundice [Unknown]
  - Bronchiolitis [Unknown]
  - Conjunctivitis infective [Unknown]
  - Viral infection [Unknown]
  - Right ventricular hypertrophy [Unknown]
  - Congenital anomaly [Unknown]
